FAERS Safety Report 5287380-2 (Version None)
Quarter: 2007Q1

REPORT INFORMATION
  Report Type: 
  Country: None (occurrence: None)
  Receive Date: 20070116
  Receipt Date: 20061103
  Transmission Date: 20070707
  Serious: No
  Sender: FDA-Public Use
  Company Number: 2006SP003952

PATIENT
  Age: 47 Year
  Sex: Male
  Weight: 102.0593 kg

DRUGS (2)
  1. LUNESTA [Suspect]
     Indication: INSOMNIA
     Dosage: 3 MG;1X;ORAL
     Route: 048
     Dates: start: 20060101, end: 20060101
  2. CRESTOR [Concomitant]

REACTIONS (1)
  - DYSGEUSIA [None]
